FAERS Safety Report 5132340-5 (Version None)
Quarter: 2006Q4

REPORT INFORMATION
  Report Type: 
  Country: None (occurrence: None)
  Receive Date: 20061023
  Receipt Date: 20061009
  Transmission Date: 20070319
  Serious: Yes (Other)
  Sender: FDA-Public Use
  Company Number: PHFR2006GB03026

PATIENT
  Sex: Female

DRUGS (2)
  1. TEGRETOL [Suspect]
     Indication: BIPOLAR DISORDER
     Dosage: 300 MG, BID
     Route: 065
  2. TEGRETOL [Suspect]
     Dosage: 200MG DAILY
     Route: 065

REACTIONS (1)
  - BREAST CANCER METASTATIC [None]
